FAERS Safety Report 7389388-X (Version None)
Quarter: 2011Q2

REPORT INFORMATION
  Report Type: 
  Country: None (occurrence: None)
  Receive Date: 20110401
  Receipt Date: 20110325
  Transmission Date: 20111010
  Serious: Yes (Life-Threatening)
  Sender: FDA-Public Use
  Company Number: B0710080A

PATIENT
  Sex: Female

DRUGS (6)
  1. RYTMONORM [Suspect]
     Indication: ATRIAL FLUTTER
     Dosage: 575MG PER DAY
     Route: 048
     Dates: start: 20110307, end: 20110321
  2. LASITONE [Concomitant]
     Dosage: 1UNIT PER DAY
     Route: 048
  3. NORVASC [Concomitant]
     Dosage: .5UNIT PER DAY
     Route: 048
  4. ZOCOR [Concomitant]
     Dosage: 1UNIT PER DAY
     Route: 048
  5. SINTROM [Concomitant]
     Dosage: 1UNIT PER DAY
     Route: 048
  6. RYTMONORM [Suspect]
     Dosage: 3UNIT PER DAY
     Route: 048
     Dates: start: 20100929, end: 20110306

REACTIONS (3)
  - ELECTROCARDIOGRAM QRS COMPLEX PROLONGED [None]
  - CARDIOGENIC SHOCK [None]
  - SUPRAVENTRICULAR TACHYCARDIA [None]
